FAERS Safety Report 15737029 (Version 1)
Quarter: 2018Q4

REPORT INFORMATION
  Report Type: Spontaneous
  Country: US (occurrence: US)
  Receive Date: 20181204
  Receipt Date: 20181204
  Transmission Date: 20190205
  Serious: No
  Sender: FDA-Public Use
  Company Number: None

PATIENT
  Age: 39 Year
  Sex: Female
  Weight: 59.4 kg

DRUGS (6)
  1. AIMOVIG [Concomitant]
     Active Substance: ERENUMAB-AOOE
  2. PLAQUINIL [Concomitant]
  3. AIMOVID (ERENUMAB-AOOE) [Suspect]
     Active Substance: ERENUMAB-AOOE
     Indication: HEADACHE
     Dosage: ?          QUANTITY:1 AUTO-INJECTOR;OTHER FREQUENCY:ONCE A MONTH;OTHER ROUTE:SUBCUTANEOUS INJECTION?
     Dates: start: 20180905
  4. ENBREL [Concomitant]
     Active Substance: ETANERCEPT
  5. PRE-NATAL MULTIVITAMIN [Concomitant]
  6. CANNABIS [Concomitant]
     Active Substance: CANNABIS SATIVA SUBSP. INDICA TOP

REACTIONS (1)
  - Alopecia [None]

NARRATIVE: CASE EVENT DATE: 20181204
